FAERS Safety Report 4658963-5 (Version None)
Quarter: 2005Q2

REPORT INFORMATION
  Report Type: 
  Country: None (occurrence: None)
  Receive Date: 20050509
  Receipt Date: 20050427
  Transmission Date: 20051028
  Serious: No
  Sender: FDA-Public Use
  Company Number: 05P-008-0298891-00

PATIENT
  Sex: Female

DRUGS (1)
  1. MERIDIA [Suspect]
     Dosage: 10 MG, 1 IN 1 D

REACTIONS (1)
  - HENOCH-SCHONLEIN PURPURA [None]
